FAERS Safety Report 4684113-5 (Version None)
Quarter: 2005Q2

REPORT INFORMATION
  Report Type: 
  Country: None (occurrence: None)
  Receive Date: 20050527
  Receipt Date: 20050127
  Transmission Date: 20051028
  Serious: Yes (Other)
  Sender: FDA-Public Use
  Company Number: 16378

PATIENT
  Age: 48 Year
  Sex: Male
  Weight: 110 kg

DRUGS (3)
  1. ACYCLOVIR [Suspect]
     Indication: MENINGITIS
     Dosage: 2200MG/1 DOSE/IV
     Route: 042
     Dates: start: 20050126
  2. TYLENOL (CAPLET) [Concomitant]
  3. ALEVE [Concomitant]

REACTIONS (2)
  - EXTRAVASATION [None]
  - INJECTION SITE REACTION [None]
